FAERS Safety Report 7519912-5 (Version None)
Quarter: 2011Q2

REPORT INFORMATION
  Report Type: 
  Country: None (occurrence: None)
  Receive Date: 20110602
  Receipt Date: 20110523
  Transmission Date: 20111010
  Serious: Yes (Hospitalization)
  Sender: FDA-Public Use
  Company Number: US-ACTELION-A-NJ2010-39441

PATIENT

DRUGS (1)
  1. TRACLEER [Suspect]
     Indication: PULMONARY ARTERIAL HYPERTENSION
     Dosage: UNK
     Route: 048
     Dates: start: 20091208

REACTIONS (5)
  - RECTAL HAEMORRHAGE [None]
  - GASTROENTERITIS VIRAL [None]
  - CLOSTRIDIAL INFECTION [None]
  - VOMITING [None]
  - GASTROINTESTINAL SURGERY [None]
